FAERS Safety Report 5239432-0 (Version None)
Quarter: 2007Q1

REPORT INFORMATION
  Report Type: 
  Country: None (occurrence: None)
  Receive Date: 20070216
  Receipt Date: 20070205
  Transmission Date: 20070707
  Serious: Yes (Hospitalization)
  Sender: FDA-Public Use
  Company Number: HQWYE796106FEB07

PATIENT
  Sex: Female
  Weight: 50.39 kg

DRUGS (3)
  1. EFFEXOR [Suspect]
     Indication: DEPRESSION
     Dosage: 150 MG IN THE MORNING AND 150 MG BEFORE BED
     Route: 048
     Dates: start: 20060801, end: 20070126
  2. EFFEXOR [Suspect]
     Dosage: 75 MG IN THE MORNING AND 75 MG BEFORE BED
     Route: 048
     Dates: start: 20070127
  3. OSCAL [Concomitant]
     Dosage: DOSE AND FREQUENCY UNSPECIFIED

REACTIONS (10)
  - ABNORMAL DREAMS [None]
  - CONFUSIONAL STATE [None]
  - DRY MOUTH [None]
  - DYSPHAGIA [None]
  - FLATULENCE [None]
  - GALLBLADDER PAIN [None]
  - PANCREATIC DISORDER [None]
  - TREMOR [None]
  - UNEVALUABLE EVENT [None]
  - YAWNING [None]
